FAERS Safety Report 7839334 (Version 3)
Quarter: 2012Q4

REPORT INFORMATION
  Report Type: 
  Country: US (occurrence: US)
  Receive Date: 20110303
  Receipt Date: 20121008
  Transmission Date: 20130627
  Serious: No
  Sender: FDA-Public Use
  Company Number: US-ASTRAZENECA-2011SE10235

PATIENT
  Age: 48 Year
  Sex: Male

DRUGS (2)
  1. NEXIUM [Suspect]
     Route: 048
  2. PRILOSEC [Suspect]
     Route: 048

REACTIONS (5)
  - Poor peripheral circulation [Unknown]
  - Malaise [Unknown]
  - Oedema peripheral [Unknown]
  - Oedema peripheral [Unknown]
  - Therapeutic response decreased [Unknown]
